FAERS Safety Report 19639949 (Version 1)
Quarter: 2021Q3

REPORT INFORMATION
  Report Type: Spontaneous
  Country: JP (occurrence: JP)
  Receive Date: 20210730
  Receipt Date: 20210730
  Transmission Date: 20211014
  Serious: Yes (Other)
  Sender: FDA-Public Use
  Company Number: JP-BAYER-2021-184610

PATIENT
  Sex: Male

DRUGS (1)
  1. NUBEQA [Suspect]
     Active Substance: DAROLUTAMIDE
     Dosage: DAILY DOSE 600 MG
     Route: 048
     Dates: start: 20210120, end: 20210722

REACTIONS (2)
  - Disease progression [None]
  - Off label use [None]

NARRATIVE: CASE EVENT DATE: 20210120
